FAERS Safety Report 8021258-6 (Version None)
Quarter: 2011Q4

REPORT INFORMATION
  Report Type: 
  Country: None (occurrence: None)
  Receive Date: 20111230
  Receipt Date: 20111230
  Transmission Date: 20120403
  Serious: Yes (Hospitalization)
  Sender: FDA-Public Use
  Company Number: None

PATIENT
  Age: 70 Year
  Sex: Male
  Weight: 69 kg

DRUGS (2)
  1. PACLITAXEL [Suspect]
     Indication: TRANSITIONAL CELL CARCINOMA
     Dosage: 70 MG IV
     Route: 042
     Dates: start: 20110621, end: 20110719
  2. PACLITAXEL [Suspect]
     Indication: METASTASES TO LIVER
     Dosage: 70 MG IV
     Route: 042
     Dates: start: 20110621, end: 20110719

REACTIONS (1)
  - ANAEMIA [None]
